FAERS Safety Report 9993105 (Version 2)
Quarter: 2015Q1

REPORT INFORMATION
  Report Type: Report from Study
  Country: US (occurrence: US)
  Receive Date: 20140310
  Receipt Date: 20150309
  Transmission Date: 20150721
  Serious: No
  Sender: FDA-Public Use
  Company Number: US-ABBVIE-14P-163-1191840-00

PATIENT
  Age: 15 Year
  Sex: Female

DRUGS (11)
  1. NORETHINDRONE ACETATE. [Suspect]
     Active Substance: NORETHINDRONE ACETATE
     Dates: start: 20140122
  2. MULTIVITAMINS [Concomitant]
     Active Substance: VITAMINS
     Indication: PRODUCT USED FOR UNKNOWN INDICATION
  3. OMEPRAZOLE. [Concomitant]
     Active Substance: OMEPRAZOLE
     Indication: PRODUCT USED FOR UNKNOWN INDICATION
  4. JOLESSA [Concomitant]
     Active Substance: ETHINYL ESTRADIOL\LEVONORGESTREL
     Indication: PRODUCT USED FOR UNKNOWN INDICATION
     Dates: start: 20140318, end: 20140402
  5. NORETHINDRONE ACETATE. [Suspect]
     Active Substance: NORETHINDRONE ACETATE
     Indication: ENDOMETRIOSIS
     Dates: start: 20131025, end: 20140113
  6. MIRALAX [Concomitant]
     Active Substance: POLYETHYLENE GLYCOL 3350
     Indication: CONSTIPATION
     Dosage: 1 CAPFUL, EVERY OTHER DAY
  7. ELAVIL [Concomitant]
     Active Substance: AMITRIPTYLINE HYDROCHLORIDE
     Indication: PRODUCT USED FOR UNKNOWN INDICATION
     Dates: start: 20140321
  8. ZANTAC [Concomitant]
     Active Substance: RANITIDINE HYDROCHLORIDE
     Indication: PRODUCT USED FOR UNKNOWN INDICATION
  9. THEANINE [Concomitant]
     Indication: PRODUCT USED FOR UNKNOWN INDICATION
     Dosage: 200-425 MG
  10. CHASTEBERRY [Concomitant]
     Indication: PRODUCT USED FOR UNKNOWN INDICATION
  11. LUPRON DEPOT [Suspect]
     Active Substance: LEUPROLIDE ACETATE
     Indication: ENDOMETRIOSIS
     Dates: start: 20131025, end: 20140313

REACTIONS (34)
  - Panic attack [Not Recovered/Not Resolved]
  - Incorrect product storage [Unknown]
  - Chest discomfort [Unknown]
  - Dizziness [Not Recovered/Not Resolved]
  - Alopecia [Unknown]
  - Feeling hot [Not Recovered/Not Resolved]
  - Pharyngeal oedema [Not Recovered/Not Resolved]
  - Headache [Not Recovered/Not Resolved]
  - Mental impairment [Not Recovered/Not Resolved]
  - Gastritis [Unknown]
  - Arthralgia [Not Recovered/Not Resolved]
  - Depressed mood [Not Recovered/Not Resolved]
  - Drug ineffective [Not Recovered/Not Resolved]
  - Acne [Not Recovered/Not Resolved]
  - Injection site pain [Recovered/Resolved]
  - Mental impairment [Not Recovered/Not Resolved]
  - Nausea [Not Recovered/Not Resolved]
  - Influenza like illness [Not Recovered/Not Resolved]
  - Dyspnoea [Not Recovered/Not Resolved]
  - Chest pain [Not Recovered/Not Resolved]
  - Injection site pain [Recovered/Resolved]
  - Feeling abnormal [Not Recovered/Not Resolved]
  - Abdominal pain [Not Recovered/Not Resolved]
  - Chest pain [Not Recovered/Not Resolved]
  - Pain [Not Recovered/Not Resolved]
  - Insomnia [Not Recovered/Not Resolved]
  - Weight increased [Unknown]
  - Muscle spasms [Not Recovered/Not Resolved]
  - Back pain [Not Recovered/Not Resolved]
  - Gastritis [Not Recovered/Not Resolved]
  - Unevaluable event [Not Recovered/Not Resolved]
  - Myalgia [Not Recovered/Not Resolved]
  - Hot flush [Recovered/Resolved]
  - Mood swings [Not Recovered/Not Resolved]

NARRATIVE: CASE EVENT DATE: 20131025
